FAERS Safety Report 16150680 (Version 2)
Quarter: 2019Q2

REPORT INFORMATION
  Report Type: Spontaneous
  Country: CN (occurrence: CN)
  Receive Date: 20190403
  Receipt Date: 20190410
  Transmission Date: 20190711
  Serious: Yes (Hospitalization, Other)
  Sender: FDA-Public Use
  Company Number: CN-PFIZER INC-2019141151

PATIENT
  Age: 74 Year
  Sex: Male
  Weight: 55 kg

DRUGS (12)
  1. CORDARONE [Suspect]
     Active Substance: AMIODARONE HYDROCHLORIDE
     Dosage: 0.20 MG, DAILY
     Route: 048
     Dates: start: 20190308, end: 20190314
  2. CORDARONE [Suspect]
     Active Substance: AMIODARONE HYDROCHLORIDE
     Dosage: 300 MG, DAILY
     Route: 041
     Dates: start: 20190303, end: 20190303
  3. BAYASPIRIN [Concomitant]
     Active Substance: ASPIRIN
     Dosage: UNK
     Dates: start: 20190303, end: 20190307
  4. SODIUM CHLORIDE. [Concomitant]
     Active Substance: SODIUM CHLORIDE
     Dosage: UNK
     Dates: start: 20190303, end: 20190307
  5. FLUXUM [Suspect]
     Active Substance: PARNAPARIN SODIUM
     Indication: ANTICOAGULANT THERAPY
     Dosage: 4250 IU, 2X/DAY
     Route: 058
     Dates: start: 20190303, end: 20190307
  6. MOXIFLOXACIN HYDROCHLORIDE. [Concomitant]
     Active Substance: MOXIFLOXACIN HYDROCHLORIDE
     Dosage: UNK
     Dates: start: 20190303, end: 20190307
  7. CORDARONE [Suspect]
     Active Substance: AMIODARONE HYDROCHLORIDE
     Indication: ATRIAL FIBRILLATION
     Dosage: 0.20 G, 3X/DAY
     Route: 048
     Dates: start: 20190304, end: 20190305
  8. GLUCOSE INJECTION [Concomitant]
     Active Substance: DEXTROSE
     Dosage: UNK
     Dates: start: 20190303, end: 20190304
  9. CORDARONE [Suspect]
     Active Substance: AMIODARONE HYDROCHLORIDE
     Dosage: 0.20 G, 2X/DAY
     Route: 048
     Dates: start: 20190306, end: 20190307
  10. CORDARONE [Suspect]
     Active Substance: AMIODARONE HYDROCHLORIDE
     Indication: ATRIAL FIBRILLATION
     Dosage: 150 MG, DAILY
     Route: 041
     Dates: start: 20190303, end: 20190303
  11. MANNITOL. [Concomitant]
     Active Substance: MANNITOL
     Dosage: UNK
     Dates: start: 20190306, end: 20190309
  12. LIPITOR [Concomitant]
     Active Substance: ATORVASTATIN CALCIUM
     Dosage: UNK
     Dates: start: 20190303, end: 20190314

REACTIONS (3)
  - Platelet count decreased [Recovering/Resolving]
  - Heart rate increased [Unknown]
  - Phlebitis [Recovering/Resolving]

NARRATIVE: CASE EVENT DATE: 20190305
